FAERS Safety Report 9858553 (Version 1)
Quarter: 2014Q1

REPORT INFORMATION
  Report Type: Spontaneous
  Country: US (occurrence: None)
  Receive Date: 20140130
  Receipt Date: 20140130
  Transmission Date: 20141002
  Serious: Yes (Hospitalization)
  Sender: FDA-Public Use
  Company Number: None

PATIENT
  Age: 63 Year
  Sex: Male
  Weight: 86 kg

DRUGS (1)
  1. LISINOPRIL [Suspect]
     Indication: HYPERTENSION
     Route: 048
     Dates: start: 20130621, end: 20131129

REACTIONS (6)
  - Lymphadenopathy [None]
  - Swelling face [None]
  - Glossodynia [None]
  - Swollen tongue [None]
  - Dysphagia [None]
  - Productive cough [None]
